FAERS Safety Report 9922341 (Version 1)
Quarter: 2014Q1

REPORT INFORMATION
  Report Type: Spontaneous
  Country: IT (occurrence: IT)
  Receive Date: 20140225
  Receipt Date: 20140225
  Transmission Date: 20141002
  Serious: Yes (Other)
  Sender: FDA-Public Use
  Company Number: IT-BAYER-2014-028976

PATIENT
  Age: 76 Year
  Sex: Male

DRUGS (5)
  1. NEXAVAR [Suspect]
     Indication: RENAL CANCER
     Dosage: DAILY DOSE 800 MG
     Route: 048
  2. NEXAVAR [Suspect]
     Indication: RENAL CANCER
     Dosage: UNK
     Route: 048
  3. INSULIN [Concomitant]
  4. CARDURA [Concomitant]
  5. CARDIOASPIRIN [Concomitant]

REACTIONS (4)
  - Convulsion [Recovered/Resolved]
  - Loss of consciousness [Recovered/Resolved]
  - Hypertonia [Recovered/Resolved]
  - Tongue biting [Recovered/Resolved]
